FAERS Safety Report 10572902 (Version 1)
Quarter: 2014Q4

REPORT INFORMATION
  Report Type: Spontaneous
  Country: IT (occurrence: None)
  Receive Date: 20141106
  Receipt Date: 20141106
  Transmission Date: 20150529
  Serious: Yes (Hospitalization)
  Sender: FDA-Public Use
  Company Number: VAL_03525_2014

PATIENT
  Age: 76 Year
  Sex: Male
  Weight: 97.5 kg

DRUGS (9)
  1. BENAZEPRIL [Suspect]
     Active Substance: BENAZEPRIL\BENAZEPRIL HYDROCHLORIDE
     Indication: HYPERTENSION
     Dosage: DF ORAL
     Route: 048
     Dates: start: 20110630, end: 20130304
  2. FUROSEMIDE (FUROSEMIDE) [Suspect]
     Active Substance: FUROSEMIDE
     Indication: HYPERTENSION
     Dosage: 25 MG, [FREQUENCY UNKNOWN] ORAL
     Route: 048
     Dates: start: 20140101, end: 20140705
  3. ASPIRIN. [Concomitant]
     Active Substance: ASPIRIN
  4. LANSOPRAZOLO [Concomitant]
     Active Substance: LANSOPRAZOLE
  5. SIMVASTATINA [Concomitant]
     Active Substance: SIMVASTATIN
  6. BENAZEPRIL [Suspect]
     Active Substance: BENAZEPRIL\BENAZEPRIL HYDROCHLORIDE
     Indication: HYPERTENSION
     Route: 048
     Dates: start: 20130628, end: 20140705
  7. ACTOS [Concomitant]
     Active Substance: PIOGLITAZONE HYDROCHLORIDE
  8. GLICLAZIDE [Concomitant]
     Active Substance: GLICLAZIDE
  9. CARVEDILOL (CARVEDILOL) [Suspect]
     Active Substance: CARVEDILOL
     Indication: HYPERTENSION
     Route: 048
     Dates: start: 20131017

REACTIONS (5)
  - Hypertension [None]
  - Fall [None]
  - Rib fracture [None]
  - Microalbuminuria [None]
  - Inappropriate antidiuretic hormone secretion [None]

NARRATIVE: CASE EVENT DATE: 20140705
